FAERS Safety Report 6355213-9 (Version None)
Quarter: 2009Q3

REPORT INFORMATION
  Report Type: 
  Country: None (occurrence: None)
  Receive Date: 20090914
  Receipt Date: 20090902
  Transmission Date: 20100115
  Serious: Yes (Other)
  Sender: FDA-Public Use
  Company Number: NO-PFIZER INC-2009264189

PATIENT
  Age: 32 Year

DRUGS (1)
  1. ZOLOFT [Suspect]
     Dosage: 50 MG, 1X/DAY
     Route: 048

REACTIONS (4)
  - FALL [None]
  - FATIGUE [None]
  - MUSCULAR WEAKNESS [None]
  - PARAESTHESIA [None]
